FAERS Safety Report 13896096 (Version 1)
Quarter: 2017Q3

REPORT INFORMATION
  Report Type: Spontaneous
  Country: US (occurrence: None)
  Receive Date: 20170814
  Receipt Date: 20170814
  Transmission Date: 20171127
  Serious: No
  Sender: FDA-Public Use
  Company Number: None

PATIENT
  Age: 51 Year
  Sex: Female
  Weight: 82.1 kg

DRUGS (7)
  1. OFLOXACIN OPHTHALMIC [Suspect]
     Active Substance: OFLOXACIN
     Indication: EYE INFECTION
     Dosage: 2 DROPS INTO EACH EYE 4 TIMES A DAY DROP INTO EYES
     Dates: start: 20170727, end: 20170730
  2. VITAMIN E [Concomitant]
     Active Substance: .ALPHA.-TOCOPHEROL
  3. HAIR, SKIN, AND NAILS VITAMINS [Concomitant]
  4. VITAMIN D3 [Concomitant]
     Active Substance: CHOLECALCIFEROL
  5. BIOTIN [Concomitant]
     Active Substance: BIOTIN
  6. OMEGA 3 [Concomitant]
     Active Substance: OMEGA-3 FATTY ACIDS
  7. GINSENG [Concomitant]
     Active Substance: ASIAN GINSENG

REACTIONS (1)
  - Hypersensitivity [None]

NARRATIVE: CASE EVENT DATE: 20170727
